FAERS Safety Report 16953723 (Version 1)
Quarter: 2019Q4

REPORT INFORMATION
  Report Type: Spontaneous
  Country: US (occurrence: US)
  Receive Date: 20191023
  Receipt Date: 20191023
  Transmission Date: 20200122
  Serious: No
  Sender: FDA-Public Use
  Company Number: US-ALMIRALL, LLC-2019AQU000471

PATIENT

DRUGS (1)
  1. SEYSARA [Suspect]
     Active Substance: SARECYCLINE HYDROCHLORIDE
     Indication: ACNE
     Dosage: 60 MG, QD
     Route: 048
     Dates: start: 20190731

REACTIONS (7)
  - Photosensitivity reaction [Unknown]
  - Anxiety [Unknown]
  - Headache [Unknown]
  - Panic attack [Unknown]
  - Dizziness [Unknown]
  - Syncope [Unknown]
  - Presyncope [Unknown]
